FAERS Safety Report 25719803 (Version 1)
Quarter: 2025Q3

REPORT INFORMATION
  Report Type: Spontaneous
  Country: JP (occurrence: JP)
  Receive Date: 20250825
  Receipt Date: 20250825
  Transmission Date: 20251020
  Serious: Yes (Hospitalization, Other)
  Sender: GLAXOSMITHKLINE
  Company Number: JP-GSK-JP2025JPN106960

PATIENT
  Age: 84 Year
  Sex: Female
  Weight: 53.7 kg

DRUGS (2)
  1. VALACYCLOVIR HYDROCHLORIDE [Suspect]
     Active Substance: VALACYCLOVIR HYDROCHLORIDE
     Indication: Herpes zoster
     Dosage: 1000 MG, QD
  2. VALACYCLOVIR HYDROCHLORIDE [Suspect]
     Active Substance: VALACYCLOVIR HYDROCHLORIDE
     Dosage: 500 MG, QD

REACTIONS (8)
  - Toxic encephalopathy [Recovering/Resolving]
  - Nephropathy toxic [Unknown]
  - Altered state of consciousness [Unknown]
  - Acute kidney injury [Unknown]
  - Diarrhoea [Unknown]
  - Dehydration [Unknown]
  - Incorrect product administration duration [Unknown]
  - Off label use [Unknown]

NARRATIVE: CASE EVENT DATE: 20250723
